FAERS Safety Report 5175224-9 (Version None)
Quarter: 2006Q4

REPORT INFORMATION
  Report Type: 
  Country: None (occurrence: None)
  Receive Date: 20061206
  Receipt Date: 20061123
  Transmission Date: 20070319
  Serious: Yes (Other)
  Sender: FDA-Public Use
  Company Number: SPV1-2006-01926

PATIENT
  Sex: Female

DRUGS (4)
  1. ANAGRELIDE HYDROCHLORIDE [Suspect]
     Indication: THROMBOCYTOPENIA
     Dosage: 0.5MG DAILY, ORAL; SEE IMAGE
     Route: 048
     Dates: start: 20050301, end: 20050301
  2. ANAGRELIDE HYDROCHLORIDE [Suspect]
     Indication: THROMBOCYTOPENIA
     Dosage: 0.5MG DAILY, ORAL; SEE IMAGE
     Route: 048
     Dates: start: 20050301
  3. HYDROXYUREA [Concomitant]
  4. ANOPYRIN (ACETYLSALICYLIC ACID) [Concomitant]

REACTIONS (5)
  - ASTHENIA [None]
  - DIZZINESS [None]
  - MEGAKARYOCYTES ABNORMAL [None]
  - MYELOFIBROSIS [None]
  - SENSATION OF PRESSURE [None]
